FAERS Safety Report 9677498 (Version 1)
Quarter: 2013Q4

REPORT INFORMATION
  Report Type: Spontaneous
  Country: BR (occurrence: BR)
  Receive Date: 20131108
  Receipt Date: 20131108
  Transmission Date: 20140711
  Serious: Yes (Hospitalization)
  Sender: FDA-Public Use
  Company Number: BR-NOVOPROD-391746

PATIENT
  Age: 79 Year
  Sex: Male
  Weight: 60 kg

DRUGS (2)
  1. LEVEMIR FLEXPEN [Suspect]
     Indication: TYPE 2 DIABETES MELLITUS
     Dosage: 60 IU, QD (20 + 40 IU AT 10:00 AND 17:00)
     Route: 058
     Dates: start: 2009
  2. PROSTAN                            /01130001/ [Concomitant]
     Indication: PROSTATE CANCER
     Dosage: EVERY 15 DAYS

REACTIONS (3)
  - Pneumonia [Unknown]
  - Infection [Unknown]
  - Scrotal infection [Unknown]
